FAERS Safety Report 9408302 (Version 2)
Quarter: 2013Q3

REPORT INFORMATION
  Report Type: Spontaneous
  Country: CN (occurrence: CN)
  Receive Date: 20130718
  Receipt Date: 20130905
  Transmission Date: 20140515
  Serious: Yes (Life-Threatening, Hospitalization)
  Sender: FDA-Public Use
  Company Number: PHHY2013CN075943

PATIENT
  Age: 72 Year
  Sex: Male

DRUGS (5)
  1. VORICONAZOLE [Suspect]
     Indication: BRONCHOPULMONARY ASPERGILLOSIS
     Dosage: 6 MG/KG, TWO LOADING DOSES
     Route: 042
  2. VORICONAZOLE [Suspect]
     Dosage: 4 MG/KG, Q12H
     Route: 042
  3. VORICONAZOLE [Suspect]
     Dosage: 200 MG, Q12H
     Route: 048
  4. VORICONAZOLE [Suspect]
     Dosage: 200 MG, PER DAY
     Route: 048
  5. VORICONAZOLE [Suspect]
     Dosage: 300 MG, PER DAY
     Route: 048

REACTIONS (4)
  - Hyponatraemia [Recovered/Resolved]
  - Malaise [Recovered/Resolved]
  - Somnolence [Recovered/Resolved]
  - Drug level increased [Recovering/Resolving]
